FAERS Safety Report 9074774 (Version 1)
Quarter: 2013Q1

REPORT INFORMATION
  Report Type: Report from Study
  Country: US (occurrence: US)
  Receive Date: 20130129
  Receipt Date: 20130129
  Transmission Date: 20140127
  Serious: No
  Sender: FDA-Public Use
  Company Number: US-ABBOTT-13P-163-1033743-00

PATIENT
  Age: 47 Year
  Sex: Female

DRUGS (1)
  1. LEUPROLIDE ACETATE DEPOT [Suspect]
     Indication: UTERINE LEIOMYOMA
     Dates: start: 201212

REACTIONS (1)
  - Menstrual disorder [Unknown]
